FAERS Safety Report 24701581 (Version 3)
Quarter: 2025Q1

REPORT INFORMATION
  Report Type: Report from Study
  Country: CA (occurrence: CA)
  Receive Date: 20241205
  Receipt Date: 20250113
  Transmission Date: 20250409
  Serious: Yes (Other)
  Sender: BAYER HEALTHCARE PHARMACEUTICALS INC.
  Company Number: CA-BAYER-2024A171191

PATIENT
  Sex: Male

DRUGS (1)
  1. JIVI [Suspect]
     Active Substance: DAMOCTOCOG ALFA PEGOL
     Indication: Factor VIII deficiency
     Route: 042
     Dates: start: 20241129

REACTIONS (10)
  - Infusion site haemorrhage [Unknown]
  - Infusion site discharge [Unknown]
  - Vascular access site complication [None]
  - Musculoskeletal chest pain [Recovered/Resolved]
  - Abdominal pain upper [Recovered/Resolved]
  - Flank pain [None]
  - Muscular weakness [Unknown]
  - Balance disorder [Unknown]
  - Mobility decreased [None]
  - Fall [None]
